FAERS Safety Report 6879751-5 (Version None)
Quarter: 2010Q3

REPORT INFORMATION
  Report Type: 
  Country: None (occurrence: None)
  Receive Date: 20100728
  Receipt Date: 20100714
  Transmission Date: 20110219
  Serious: Yes (Disabling)
  Sender: FDA-Public Use
  Company Number: GB-ELI_LILLY_AND_COMPANY-GB201007004304

PATIENT
  Age: 75 Year
  Sex: Female

DRUGS (1)
  1. ZYPREXA [Suspect]
     Indication: PSYCHOTIC BEHAVIOUR
     Dosage: 5 MG, UNKNOWN
     Route: 065

REACTIONS (2)
  - GAIT DISTURBANCE [None]
  - OFF LABEL USE [None]
